FAERS Safety Report 15196341 (Version 1)
Quarter: 2018Q3

REPORT INFORMATION
  Report Type: Spontaneous
  Country: US (occurrence: US)
  Receive Date: 20180626
  Receipt Date: 20180626
  Transmission Date: 20181010
  Serious: Yes (Hospitalization)
  Sender: FDA-Public Use
  Company Number: None

PATIENT
  Age: 33 Year
  Sex: Female
  Weight: 137.44 kg

DRUGS (1)
  1. ARIPIPRAZOLE. [Suspect]
     Active Substance: ARIPIPRAZOLE
     Indication: DEPRESSION
     Route: 048
     Dates: start: 20180412, end: 20180419

REACTIONS (10)
  - Status epilepticus [None]
  - Rapid eye movement sleep behaviour disorder [None]
  - Insomnia [None]
  - Dyssomnia [None]
  - Tachyphrenia [None]
  - Anxiety [None]
  - Muscle twitching [None]
  - Feeling abnormal [None]
  - Dizziness [None]
  - Petit mal epilepsy [None]

NARRATIVE: CASE EVENT DATE: 20180419
